FAERS Safety Report 8058087-3 (Version None)
Quarter: 2012Q1

REPORT INFORMATION
  Report Type: 
  Country: None (occurrence: None)
  Receive Date: 20120113
  Receipt Date: 20120104
  Transmission Date: 20120608
  Serious: Yes (Disabling, Other)
  Sender: FDA-Public Use
  Company Number: 2011AP003116

PATIENT
  Age: 42 Year
  Sex: Male

DRUGS (1)
  1. CITALOPRAM HYDROBROMIDE [Suspect]
     Indication: DEPRESSION
     Dosage: 40 MG; QD; PO
     Route: 048
     Dates: start: 20091001, end: 20111101

REACTIONS (2)
  - FALL [None]
  - ELECTROCARDIOGRAM QT PROLONGED [None]
